FAERS Safety Report 9345673 (Version 1)
Quarter: 2013Q2

REPORT INFORMATION
  Report Type: Spontaneous
  Country: GB (occurrence: GB)
  Receive Date: 20130613
  Receipt Date: 20130613
  Transmission Date: 20140414
  Serious: Yes (Other)
  Sender: FDA-Public Use
  Company Number: PHFR2013GB003345

PATIENT
  Sex: 0

DRUGS (1)
  1. IMATINIB [Suspect]
     Dosage: UNK UKN, UNK
     Dates: start: 2009

REACTIONS (2)
  - Bradycardia [Unknown]
  - Dyspnoea [Unknown]
